FAERS Safety Report 5607631-1 (Version None)
Quarter: 2008Q1

REPORT INFORMATION
  Report Type: 
  Country: None (occurrence: None)
  Receive Date: 20080128
  Receipt Date: 20080128
  Transmission Date: 20080703
  Serious: Yes (Other)
  Sender: FDA-Public Use
  Company Number: None

PATIENT
  Age: 45 Year
  Sex: Male
  Weight: 79.3795 kg

DRUGS (3)
  1. CRESTOR [Suspect]
  2. TRICOR [Suspect]
  3. ZETIA [Suspect]

REACTIONS (11)
  - ASTHENIA [None]
  - BLOOD CREATINE PHOSPHOKINASE INCREASED [None]
  - CHEST PAIN [None]
  - DYSPNOEA [None]
  - HEPATIC ENZYME INCREASED [None]
  - HEPATIC LESION [None]
  - KIDNEY INFECTION [None]
  - MYALGIA [None]
  - PALPITATIONS [None]
  - UNEVALUABLE EVENT [None]
  - VISION BLURRED [None]
